FAERS Safety Report 18673215 (Version 2)
Quarter: 2021Q1

REPORT INFORMATION
  Report Type: Report from Study
  Country: FR (occurrence: FR)
  Receive Date: 20201228
  Receipt Date: 20210201
  Transmission Date: 20210419
  Serious: Yes (Other)
  Sender: FDA-Public Use
  Company Number: FR-MYLANLABS-2020M1103984

PATIENT
  Age: 71 Year
  Sex: Male
  Weight: 107 kg

DRUGS (18)
  1. UPTRAVI [Interacting]
     Active Substance: SELEXIPAG
     Dosage: 1600 MCG, BID
     Route: 048
     Dates: start: 20200422
  2. UPTRAVI [Interacting]
     Active Substance: SELEXIPAG
     Dosage: 1600 MILLIGRAM
     Route: 048
     Dates: start: 20201127
  3. UPTRAVI [Interacting]
     Active Substance: SELEXIPAG
     Dosage: 1000 MG, BID
     Route: 048
     Dates: start: 20201127
  4. UPTRAVI [Interacting]
     Active Substance: SELEXIPAG
     Dosage: 1000 MCG, BID
     Route: 048
     Dates: start: 20200401
  5. UPTRAVI [Interacting]
     Active Substance: SELEXIPAG
     Dosage: 1200 MCG, BID
     Route: 048
     Dates: start: 20200408
  6. UPTRAVI [Interacting]
     Active Substance: SELEXIPAG
     Dosage: 2400 MICROGRAM, QD
     Route: 048
     Dates: start: 20201120
  7. TADALAFIL. [Concomitant]
     Active Substance: TADALAFIL
     Indication: PULMONARY ARTERIAL HYPERTENSION
     Dosage: UNK
  8. CLOPIDOGREL [Suspect]
     Active Substance: CLOPIDOGREL BISULFATE
     Indication: PRODUCT USED FOR UNKNOWN INDICATION
     Dosage: UNK
     Route: 065
  9. OXYGEN. [Suspect]
     Active Substance: OXYGEN
     Indication: PRODUCT USED FOR UNKNOWN INDICATION
     Dosage: UNK
     Route: 055
  10. AMBRISENTAN [Concomitant]
     Active Substance: AMBRISENTAN
     Indication: PULMONARY ARTERIAL HYPERTENSION
     Dosage: UNK
  11. UPTRAVI [Interacting]
     Active Substance: SELEXIPAG
     Dosage: 200 MCG, BID
     Route: 048
     Dates: start: 20200305
  12. UPTRAVI [Interacting]
     Active Substance: SELEXIPAG
     Dosage: 400 MCG, BID
     Route: 048
     Dates: start: 20200311
  13. UPTRAVI [Interacting]
     Active Substance: SELEXIPAG
     Indication: PULMONARY ARTERIAL HYPERTENSION
     Dosage: 200 MCG, QD
     Route: 048
     Dates: start: 20200226
  14. UPTRAVI [Interacting]
     Active Substance: SELEXIPAG
     Dosage: 600 MCG, BID
     Route: 048
     Dates: start: 20200318
  15. UPTRAVI [Interacting]
     Active Substance: SELEXIPAG
     Dosage: 1400 MCG, BID
     Route: 048
     Dates: start: 20200415
  16. UPTRAVI [Interacting]
     Active Substance: SELEXIPAG
     Dosage: 2800 MICROGRAM, QD
     Route: 048
     Dates: start: 20201113
  17. UPTRAVI [Interacting]
     Active Substance: SELEXIPAG
     Dosage: 800 MCG, BID
     Route: 048
     Dates: start: 20200325
  18. PREVISCAN                          /00789001/ [Concomitant]
     Active Substance: FLUINDIONE
     Dosage: UNK
     Dates: start: 20200304

REACTIONS (10)
  - Pulmonary arterial hypertension [Unknown]
  - Pain in jaw [Not Recovered/Not Resolved]
  - International normalised ratio increased [Unknown]
  - Drug interaction [Unknown]
  - Product prescribing error [Recovered/Resolved]
  - Nasal congestion [Not Recovered/Not Resolved]
  - Inappropriate schedule of product administration [Recovered/Resolved]
  - Sleep disorder [Not Recovered/Not Resolved]
  - Dyspnoea [Not Recovered/Not Resolved]
  - Dizziness [Recovered/Resolved]

NARRATIVE: CASE EVENT DATE: 202003
